FAERS Safety Report 12534668 (Version 1)
Quarter: 2016Q3

REPORT INFORMATION
  Report Type: Spontaneous
  Country: ES (occurrence: ES)
  Receive Date: 20160706
  Receipt Date: 20160706
  Transmission Date: 20161109
  Serious: Yes (Life-Threatening, Hospitalization)
  Sender: FDA-Public Use
  Company Number: ES-ASTRAZENECA-2016SE71923

PATIENT
  Age: 79 Year
  Sex: Male

DRUGS (1)
  1. BRILIQUE [Suspect]
     Active Substance: TICAGRELOR
     Indication: MYOCARDIAL ISCHAEMIA
     Route: 048
     Dates: start: 20160515, end: 20160622

REACTIONS (2)
  - Circumstance or information capable of leading to medication error [Unknown]
  - Renal failure [Unknown]

NARRATIVE: CASE EVENT DATE: 201605
